FAERS Safety Report 8542464-8 (Version None)
Quarter: 2012Q3

REPORT INFORMATION
  Report Type: 
  Country: None (occurrence: None)
  Receive Date: 20120726
  Receipt Date: 20110720
  Transmission Date: 20120928
  Serious: Yes (Other)
  Sender: FDA-Public Use
  Company Number: US-ASTRAZENECA-2009SE16337

PATIENT
  Age: 27 Year
  Sex: Female
  Weight: 94.3 kg

DRUGS (6)
  1. SEROQUEL [Suspect]
     Indication: DEPRESSION
     Route: 048
     Dates: start: 20001101, end: 20010101
  2. AMITRIPTYLINE HYDROCHLORIDE [Concomitant]
     Dates: start: 20071118
  3. PAXIL [Concomitant]
     Route: 048
     Dates: start: 20001207
  4. RISPERDAL [Concomitant]
     Dates: start: 19950101
  5. PAXIL [Concomitant]
     Dates: start: 20030306, end: 20070731
  6. SEROQUEL [Suspect]
     Dosage: 25-100 MG
     Route: 048
     Dates: start: 20001102

REACTIONS (9)
  - CONVULSION [None]
  - ADVERSE DRUG REACTION [None]
  - HYPERLIPIDAEMIA [None]
  - OBESITY [None]
  - TYPE 2 DIABETES MELLITUS [None]
  - BLOOD CHOLESTEROL INCREASED [None]
  - DIABETES MELLITUS INADEQUATE CONTROL [None]
  - BACK DISORDER [None]
  - BLOOD TRIGLYCERIDES INCREASED [None]
